FAERS Safety Report 8665996 (Version 2)
Quarter: 2012Q4

REPORT INFORMATION
  Report Type: 
  Country: CA (occurrence: CA)
  Receive Date: 20120716
  Receipt Date: 20121019
  Transmission Date: 20130627
  Serious: Yes (Life-Threatening, Hospitalization)
  Sender: FDA-Public Use
  Company Number: CA-PFIZER INC-2012168001

PATIENT
  Age: 72 Year
  Sex: Female
  Weight: 53 kg

DRUGS (5)
  1. PANTOLOC [Suspect]
     Dosage: UNK
     Route: 065
  2. ADALAT [Concomitant]
     Dosage: UNK
  3. LANTUS [Concomitant]
     Dosage: UNK
     Route: 058
  4. METOPROLOL [Concomitant]
     Dosage: UNK
  5. SYNTHROID [Concomitant]

REACTIONS (3)
  - Hypomagnesaemia [Recovered/Resolved]
  - Atrial fibrillation [Recovered/Resolved]
  - Hypokalaemia [Recovered/Resolved]
